FAERS Safety Report 6599591-4 (Version None)
Quarter: 2010Q1

REPORT INFORMATION
  Report Type: 
  Country: None (occurrence: None)
  Receive Date: 20100224
  Receipt Date: 20100213
  Transmission Date: 20100710
  Serious: Yes (Other)
  Sender: FDA-Public Use
  Company Number: US-JNJFOC-20100205647

PATIENT
  Age: 72 Year
  Sex: Male
  Weight: 140.62 kg

DRUGS (3)
  1. EXTRA STRENGTH TYLENOL [Suspect]
     Indication: PAIN
     Route: 048
  2. EXTRA STRENGTH TYLENOL [Suspect]
     Indication: BACK PAIN
     Route: 048
  3. EXTRA STRENGTH TYLENOL [Suspect]
     Indication: HEADACHE
     Route: 048

REACTIONS (4)
  - ABDOMINAL DISCOMFORT [None]
  - DIARRHOEA [None]
  - PRODUCT QUALITY ISSUE [None]
  - WEIGHT DECREASED [None]
